FAERS Safety Report 7619148-3 (Version None)
Quarter: 2011Q3

REPORT INFORMATION
  Report Type: 
  Country: None (occurrence: None)
  Receive Date: 20110718
  Receipt Date: 20110707
  Transmission Date: 20111222
  Serious: Yes (Hospitalization)
  Sender: FDA-Public Use
  Company Number: US-ASTRAZENECA-2010SE39843

PATIENT
  Age: 58 Year
  Sex: Female
  Weight: 60.3 kg

DRUGS (6)
  1. CRESTOR [Suspect]
     Indication: BLOOD CHOLESTEROL INCREASED
     Route: 048
     Dates: start: 20060903, end: 20080101
  2. CLINIPRIL [Concomitant]
  3. NIASPAN [Concomitant]
  4. FASOMAX [Concomitant]
  5. FISH OIL [Concomitant]
  6. CRESTOR [Suspect]
     Route: 048
     Dates: start: 20080101, end: 20100611

REACTIONS (11)
  - ROTATOR CUFF SYNDROME [None]
  - MYALGIA [None]
  - HEART RATE IRREGULAR [None]
  - CHEST PAIN [None]
  - MUSCLE INJURY [None]
  - BLOOD TRIGLYCERIDES DECREASED [None]
  - SHOULDER OPERATION [None]
  - PALPITATIONS [None]
  - VENTRICULAR EXTRASYSTOLES [None]
  - BRUXISM [None]
  - STOMATITIS [None]
